FAERS Safety Report 9130090 (Version 4)
Quarter: 2016Q1

REPORT INFORMATION
  Report Type: Spontaneous
  Country: US (occurrence: US)
  Receive Date: 20130228
  Receipt Date: 20160208
  Transmission Date: 20160526
  Serious: No
  Sender: FDA-Public Use
  Company Number: US-PFIZER INC-2013070893

PATIENT
  Age: 65 Year
  Sex: Female

DRUGS (1)
  1. NEURONTIN [Suspect]
     Active Substance: GABAPENTIN
     Dosage: UNK

REACTIONS (4)
  - Drug ineffective [Unknown]
  - Diarrhoea [Unknown]
  - Muscle spasms [Not Recovered/Not Resolved]
  - Headache [Unknown]
